FAERS Safety Report 9189306 (Version 1)
Quarter: 2013Q1

REPORT INFORMATION
  Report Type: Spontaneous
  Country: US (occurrence: None)
  Receive Date: 20130321
  Receipt Date: 20130321
  Transmission Date: 20140127
  Serious: Yes (Hospitalization)
  Sender: FDA-Public Use
  Company Number: None

PATIENT
  Sex: Female
  Weight: 94.8 kg

DRUGS (19)
  1. DAPSONE [Suspect]
     Indication: ANTIFUNGAL PROPHYLAXIS
     Route: 048
     Dates: start: 20121015, end: 20121110
  2. DEXAMETHASONE [Concomitant]
  3. LENALIDOMIDE [Concomitant]
  4. ACYCLOVIR [Concomitant]
  5. AMLODIPINE [Concomitant]
  6. ASPIRIN [Concomitant]
  7. CELECOXIB [Concomitant]
  8. METFORMIN [Concomitant]
  9. PRAVASTATIN [Concomitant]
  10. SERTRALINE [Concomitant]
  11. ONDANSETRON [Concomitant]
  12. VALSARTAN [Concomitant]
  13. TRAMADOL [Concomitant]
  14. ZOLPIDEM [Concomitant]
  15. ZOLEDRONIC IV [Concomitant]
  16. MULTIVITAMIN [Concomitant]
  17. CALCIUM [Concomitant]
  18. FERROUS SULFATE [Concomitant]
  19. FOLATE [Concomitant]

REACTIONS (4)
  - Haemolytic anaemia [None]
  - Methaemoglobinaemia [None]
  - Anaemia [None]
  - Renal failure acute [None]
